FAERS Safety Report 4544232-0 (Version None)
Quarter: 2004Q4

REPORT INFORMATION
  Report Type: 
  Country: None (occurrence: None)
  Receive Date: 20041230
  Receipt Date: 20041230
  Transmission Date: 20050328
  Serious: Yes (Life-Threatening, Hospitalization, Other)
  Sender: FDA-Public Use
  Company Number: None

PATIENT
  Age: 8 Year
  Sex: Female
  Weight: 16.7831 kg

DRUGS (1)
  1. ALLOGRAFT PATCH CRYOLIFE [Suspect]
     Indication: PULMONARY ARTERY STENOSIS
     Dosage: IMPLANTED
     Dates: start: 20041118, end: 20041118

REACTIONS (2)
  - IMPLANT SITE INFECTION [None]
  - STAPHYLOCOCCAL INFECTION [None]
